FAERS Safety Report 13668628 (Version 1)
Quarter: 2017Q2

REPORT INFORMATION
  Report Type: Spontaneous
  Country: US (occurrence: US)
  Receive Date: 20170620
  Receipt Date: 20170620
  Transmission Date: 20170830
  Serious: Yes (Other)
  Sender: FDA-Public Use
  Company Number: None

PATIENT
  Age: 70 Year
  Sex: Male
  Weight: 93.5 kg

DRUGS (1)
  1. OXALIPLATIN 100 MG TEVA [Suspect]
     Active Substance: OXALIPLATIN
     Indication: COLON CANCER
     Dosage: 184 MG Q 2 WEEKS IV
     Route: 042
     Dates: start: 20130913, end: 20170522

REACTIONS (1)
  - Pruritus [None]

NARRATIVE: CASE EVENT DATE: 20170608
